FAERS Safety Report 4796831-9 (Version None)
Quarter: 2005Q4

REPORT INFORMATION
  Report Type: 
  Country: None (occurrence: None)
  Receive Date: 20051013
  Receipt Date: 20050802
  Transmission Date: 20060501
  Serious: Yes (Death, Life-Threatening, Hospitalization, Other)
  Sender: FDA-Public Use
  Company Number: JP-SANOFI-SYNTHELABO-F01200501396

PATIENT
  Age: 69 Year
  Sex: Female
  Weight: 61 kg

DRUGS (5)
  1. OXALIPLATIN [Suspect]
     Indication: COLON CANCER
     Dosage: 130MG/BODY=85MG/M2
     Route: 042
     Dates: start: 20050512, end: 20050512
  2. OXALIPLATIN [Suspect]
     Route: 041
     Dates: start: 20050602, end: 20050602
  3. FLUOROURACIL [Suspect]
     Dosage: 600MG/BODY=392.2MG/M2 BOLUS, 900MG/BODY=588.2MG/M2 INFUSION
     Route: 042
     Dates: start: 20050512, end: 20050513
  4. FLUOROURACIL [Suspect]
     Dosage: 300 MG/BODY=196.1MG/M2 BOLUS AND 600 MG/BODY=392.2 MG/M2 AS INFUSION
     Dates: start: 20050602, end: 20050603
  5. CALCIUM LEVOFOLINATE [Suspect]
     Dosage: 150MG/BODY=98MG/M2
     Route: 042
     Dates: start: 20050512, end: 20050603

REACTIONS (9)
  - ALANINE AMINOTRANSFERASE INCREASED [None]
  - ASPARTATE AMINOTRANSFERASE INCREASED [None]
  - BLOOD UREA INCREASED [None]
  - HEPATIC FAILURE [None]
  - LEUKOPENIA [None]
  - METASTASES TO BONE [None]
  - NEUTROPENIA [None]
  - RENAL FAILURE [None]
  - THROMBOCYTOPENIA [None]
